FAERS Safety Report 23183622 (Version 2)
Quarter: 2024Q1

REPORT INFORMATION
  Report Type: Spontaneous
  Country: US (occurrence: US)
  Receive Date: 20231114
  Receipt Date: 20240207
  Transmission Date: 20240410
  Serious: Yes (Other)
  Sender: FDA-Public Use
  Company Number: US-PFIZER INC-PV202300181498

PATIENT
  Age: 78 Year
  Sex: Female
  Weight: 58.97 kg

DRUGS (2)
  1. IBRANCE [Suspect]
     Active Substance: PALBOCICLIB
     Indication: Breast cancer metastatic
     Dosage: 125 MG, CYCLIC (EVERY DAY FOR 21 DAYS AND 7 DAYS OFF SWALLOW WHOLE)
     Route: 048
     Dates: start: 2023, end: 20231025
  2. IBRANCE [Suspect]
     Active Substance: PALBOCICLIB
     Dosage: 125MG ONE TABLET BY MOUTH EVERY DAY FOR 21 DAYS AND 7 DAYS OFF SWALLOW WHOLE
     Route: 048

REACTIONS (3)
  - Cerebrovascular accident [Recovered/Resolved]
  - Nervousness [Unknown]
  - Off label use [Unknown]

NARRATIVE: CASE EVENT DATE: 20230101
